FAERS Safety Report 7583721-1 (Version None)
Quarter: 2011Q2

REPORT INFORMATION
  Report Type: 
  Country: None (occurrence: None)
  Receive Date: 20110630
  Receipt Date: 20110623
  Transmission Date: 20111010
  Serious: Yes (Other)
  Sender: FDA-Public Use
  Company Number: B0729576A

PATIENT
  Sex: Female

DRUGS (9)
  1. HYDROXYCHLOROQUINE SULFATE [Concomitant]
     Route: 065
  2. ENALAPRIL MALEATE [Concomitant]
     Route: 065
  3. PREDNISONE [Concomitant]
     Route: 065
  4. ALLOPURINOL [Concomitant]
     Route: 065
  5. AMILORIDE HCL AND HYDROCHLOROTHIAZIDE [Concomitant]
     Route: 065
  6. NEBIVOLOL HCL [Concomitant]
     Route: 065
  7. LANOXIN [Suspect]
     Indication: ATRIAL FIBRILLATION
     Dosage: .125MG PER DAY
     Route: 065
     Dates: start: 20110429, end: 20110611
  8. WARFARIN SODIUM [Concomitant]
     Route: 065
  9. LANSOPRAZOLE [Concomitant]
     Route: 065

REACTIONS (3)
  - MACULAR DEGENERATION [None]
  - OVERDOSE [None]
  - SCINTILLATING SCOTOMA [None]
